FAERS Safety Report 18948012 (Version 1)
Quarter: 2021Q1

REPORT INFORMATION
  Report Type: Report from Study
  Country: PK (occurrence: PK)
  Receive Date: 20210226
  Receipt Date: 20210226
  Transmission Date: 20210420
  Serious: Yes (Death)
  Sender: FDA-Public Use
  Company Number: NVSC2021PK042817

PATIENT
  Age: 66 Year
  Sex: Female
  Weight: 40 kg

DRUGS (1)
  1. GLIVEC [Suspect]
     Active Substance: IMATINIB MESYLATE
     Indication: CHRONIC MYELOID LEUKAEMIA
     Dosage: 4 DF, QD
     Route: 065
     Dates: start: 20191016

REACTIONS (2)
  - Platelet count increased [Unknown]
  - Anaemia [Fatal]

NARRATIVE: CASE EVENT DATE: 20200719
